FAERS Safety Report 6321307-7 (Version None)
Quarter: 2009Q3

REPORT INFORMATION
  Report Type: 
  Country: None (occurrence: None)
  Receive Date: 20090822
  Receipt Date: 20090109
  Transmission Date: 20100115
  Serious: No
  Sender: FDA-Public Use
  Company Number: US-ABBOTT-09P-163-0496896-00

PATIENT
  Sex: Male
  Weight: 113 kg

DRUGS (7)
  1. NIASPAN [Suspect]
     Indication: BLOOD CHOLESTEROL INCREASED
     Route: 048
     Dates: start: 20090107
  2. BENICAR [Concomitant]
     Indication: BLOOD PRESSURE
     Route: 048
  3. HYDROCHLOROTHIAZIDE [Concomitant]
     Indication: FLUID RETENTION
  4. ENALAPRIL MALEATE [Concomitant]
     Indication: BLOOD PRESSURE
  5. PLAVIX [Concomitant]
     Indication: DRUG USE FOR UNKNOWN INDICATION
     Dates: start: 20081201
  6. PRILOSEC [Concomitant]
     Indication: ABDOMINAL DISCOMFORT
  7. GLYBURIDE [Concomitant]
     Indication: BLOOD GLUCOSE ABNORMAL

REACTIONS (2)
  - BLOOD PRESSURE INCREASED [None]
  - PRURITUS [None]
